FAERS Safety Report 7868331-0 (Version None)
Quarter: 2011Q4

REPORT INFORMATION
  Report Type: 
  Country: None (occurrence: None)
  Receive Date: 20111028
  Receipt Date: 20111023
  Transmission Date: 20120403
  Serious: Yes (Other)
  Sender: FDA-Public Use
  Company Number: US-US-EMD SERONO, INC.-7089098

PATIENT
  Sex: Female
  Weight: 75 kg

DRUGS (6)
  1. ZOLOFT [Concomitant]
  2. AMBIEN [Concomitant]
  3. DITROPAN [Concomitant]
  4. REBIF [Suspect]
     Indication: MULTIPLE SCLEROSIS
     Route: 058
     Dates: start: 20071003
  5. KLONOPIN [Concomitant]
  6. UNSPECIFIED BIRTH CONTROL [Suspect]

REACTIONS (10)
  - LIVER FUNCTION TEST ABNORMAL [None]
  - PULMONARY EMBOLISM [None]
  - MUSCLE SPASMS [None]
  - INFLUENZA LIKE ILLNESS [None]
  - INJECTION SITE REACTION [None]
  - PAIN [None]
  - KIDNEY INFECTION [None]
  - PAIN IN EXTREMITY [None]
  - OVARIAN CYST [None]
  - BLADDER SPASM [None]
